FAERS Safety Report 14632816 (Version 6)
Quarter: 2018Q2

REPORT INFORMATION
  Report Type: Report from Study
  Country: BR (occurrence: BR)
  Receive Date: 20180313
  Receipt Date: 20180619
  Transmission Date: 20180711
  Serious: Yes (Other)
  Sender: FDA-Public Use
  Company Number: PHHY2016BR064841

PATIENT
  Age: 71 Year
  Sex: Male
  Weight: 66 kg

DRUGS (5)
  1. AFINITOR [Suspect]
     Active Substance: EVEROLIMUS
     Dosage: 10 MG, QD
     Route: 048
     Dates: start: 201507
  2. SANDOSTATIN LAR DEPOT [Suspect]
     Active Substance: OCTREOTIDE ACETATE
     Indication: NEUROENDOCRINE TUMOUR
     Dosage: 30 MG, QMO
     Route: 030
     Dates: start: 201108
  3. SANDOSTATIN LAR DEPOT [Suspect]
     Active Substance: OCTREOTIDE ACETATE
     Dosage: 1 OT, QMO (1 AMPOULE A MONTH)
     Route: 030
  4. SUNITINIB [Concomitant]
     Active Substance: SUNITINIB
     Indication: PRODUCT USED FOR UNKNOWN INDICATION
     Route: 065
  5. AFINITOR [Suspect]
     Active Substance: EVEROLIMUS
     Indication: NEUROENDOCRINE TUMOUR
     Dosage: 1 DF, QD
     Route: 048
     Dates: start: 201110

REACTIONS (26)
  - Haemoglobin abnormal [Unknown]
  - Nodule [Unknown]
  - Functional gastrointestinal disorder [Unknown]
  - Nausea [Recovering/Resolving]
  - Abdominal pain [Recovered/Resolved]
  - Blood glucose increased [Unknown]
  - Diarrhoea [Recovered/Resolved]
  - Malignant neoplasm progression [Not Recovered/Not Resolved]
  - Memory impairment [Unknown]
  - Eating disorder [Unknown]
  - Spleen disorder [Unknown]
  - Abdominal pain [Unknown]
  - Weight decreased [Unknown]
  - Nervousness [Unknown]
  - Dysentery [Unknown]
  - Ageusia [Unknown]
  - Mouth injury [Unknown]
  - Pulmonary mass [Unknown]
  - Hypertension [Recovering/Resolving]
  - Urine analysis abnormal [Unknown]
  - Decreased appetite [Unknown]
  - Drug ineffective [Unknown]
  - Diabetes mellitus [Not Recovered/Not Resolved]
  - Malaise [Unknown]
  - Nervousness [Unknown]
  - Pain [Recovering/Resolving]

NARRATIVE: CASE EVENT DATE: 2012
